FAERS Safety Report 8388723-3 (Version None)
Quarter: 2012Q2

REPORT INFORMATION
  Report Type: 
  Country: None (occurrence: None)
  Receive Date: 20120527
  Receipt Date: 20120517
  Transmission Date: 20120825
  Serious: Yes (Hospitalization)
  Sender: FDA-Public Use
  Company Number: IT-TEVA-338787ISR

PATIENT
  Sex: Male

DRUGS (2)
  1. FLUOROURACIL [Suspect]
     Indication: LIP AND/OR ORAL CAVITY CANCER
     Dosage: 5180 MILLIGRAM;
     Route: 042
     Dates: start: 20120327, end: 20120331
  2. CISPLATIN [Suspect]
     Indication: LIP AND/OR ORAL CAVITY CANCER
     Dosage: 130 MILLIGRAM;
     Route: 042
     Dates: start: 20120327, end: 20120327

REACTIONS (2)
  - STOMATITIS [None]
  - PANCYTOPENIA [None]
